FAERS Safety Report 8809014 (Version 1)
Quarter: 2012Q4

REPORT INFORMATION
  Report Type: 
  Country: US (occurrence: None)
  Receive Date: 20120920
  Receipt Date: 20120920
  Transmission Date: 20130627
  Serious: Yes (Hospitalization)
  Sender: FDA-Public Use
  Company Number: None

PATIENT
  Sex: Male
  Weight: 78.9 kg

DRUGS (1)
  1. CISPLATIN [Suspect]
     Indication: OROPHARYNGEAL SQUAMOUS CELL CARCINOMA

REACTIONS (5)
  - Vomiting [None]
  - Nausea [None]
  - Renal failure acute [None]
  - Pain [None]
  - Constipation [None]
